FAERS Safety Report 9034568 (Version 1)
Quarter: 2013Q1

REPORT INFORMATION
  Report Type: Spontaneous
  Country: US (occurrence: US)
  Receive Date: 20130128
  Receipt Date: 20130128
  Transmission Date: 20140127
  Serious: No
  Sender: FDA-Public Use
  Company Number: US-ASTRAZENECA-2013SE00923

PATIENT
  Age: 59 Year
  Sex: Female

DRUGS (2)
  1. SYMBICORT PMDI [Suspect]
     Route: 055
  2. ALVESCO [Concomitant]

REACTIONS (2)
  - Haemorrhage subcutaneous [Unknown]
  - Rash macular [Unknown]
